FAERS Safety Report 8910832 (Version 1)
Quarter: 2012Q4

REPORT INFORMATION
  Report Type: 
  Country: US (occurrence: US)
  Receive Date: 20121115
  Receipt Date: 20121115
  Transmission Date: 20130627
  Serious: No
  Sender: FDA-Public Use
  Company Number: US-B.I. PHARMACEUTICALS,INC./RIDGEFIELD-2012-BP-27485BP

PATIENT
  Sex: Female

DRUGS (3)
  1. SPIRIVA [Suspect]
     Indication: CHRONIC OBSTRUCTIVE PULMONARY DISEASE
     Dosage: 18 mcg
     Route: 055
     Dates: start: 201209
  2. SYMBICORT [Concomitant]
     Indication: ASTHMA
     Dosage: 4 puf
     Route: 055
     Dates: start: 201209
  3. PROAIR [Concomitant]
     Dosage: 4 puf
     Route: 055

REACTIONS (2)
  - Cough [Unknown]
  - Productive cough [Unknown]
